FAERS Safety Report 4533500-4 (Version None)
Quarter: 2004Q4

REPORT INFORMATION
  Report Type: 
  Country: None (occurrence: None)
  Receive Date: 20041221
  Receipt Date: 20041208
  Transmission Date: 20050328
  Serious: Yes (Death)
  Sender: FDA-Public Use
  Company Number: US-AMGEN-US102301

PATIENT
  Sex: Male

DRUGS (2)
  1. ENBREL [Suspect]
     Indication: PSORIASIS
     Route: 058
     Dates: start: 20040101, end: 20041204
  2. HYDROCORTISONE [Concomitant]
     Route: 048

REACTIONS (4)
  - DEATH [None]
  - DELIRIUM [None]
  - INFLUENZA LIKE ILLNESS [None]
  - PYREXIA [None]
